FAERS Safety Report 23468463 (Version 2)
Quarter: 2024Q1

REPORT INFORMATION
  Report Type: Spontaneous
  Country: US (occurrence: US)
  Receive Date: 20240202
  Receipt Date: 20240207
  Transmission Date: 20240410
  Serious: Yes (Hospitalization)
  Sender: FDA-Public Use
  Company Number: US-HISAMITSU PHARMACEUTICAL CO., INC.-2024-NOV-US000091

PATIENT
  Sex: Female

DRUGS (2)
  1. SECUADO [Suspect]
     Active Substance: ASENAPINE
     Indication: Schizophrenia
     Dosage: 7.6 MG, UNKNOWN
     Route: 062
     Dates: start: 2023
  2. SECUADO [Suspect]
     Active Substance: ASENAPINE
     Indication: Schizoaffective disorder

REACTIONS (3)
  - Psychotic disorder [Recovered/Resolved]
  - Akathisia [Recovered/Resolved]
  - Incorrect dose administered [Recovered/Resolved]

NARRATIVE: CASE EVENT DATE: 20240101
